FAERS Safety Report 16876642 (Version 1)
Quarter: 2019Q4

REPORT INFORMATION
  Report Type: Spontaneous
  Country: US (occurrence: US)
  Receive Date: 20191002
  Receipt Date: 20191002
  Transmission Date: 20200122
  Serious: No
  Sender: FDA-Public Use
  Company Number: None

PATIENT
  Age: 41 Year
  Sex: Female
  Weight: 78.2 kg

DRUGS (14)
  1. VOLTAREN [Concomitant]
     Active Substance: DICLOFENAC SODIUM
  2. CYCLOBENZAPRINE 10 MG [Concomitant]
     Active Substance: CYCLOBENZAPRINE
  3. FLUTICASONE NASAL SPRAY [Concomitant]
     Active Substance: FLUTICASONE
  4. TIZANIDINE 4 MG [Concomitant]
     Active Substance: TIZANIDINE
  5. EPCLUSA [Suspect]
     Active Substance: SOFOSBUVIR\VELPATASVIR
     Indication: HEPATITIS C
     Route: 048
     Dates: start: 20190809
  6. COLESTIPOL 1 GM [Concomitant]
  7. AMPHETAMINE-DEXTROAMPHEATMINE 30 MG [Concomitant]
  8. DICYCLOMINE 10 MG [Concomitant]
  9. NAPROXEN 500 MG [Concomitant]
     Active Substance: NAPROXEN
  10. ALPRAZOLAM 1 MG [Concomitant]
     Active Substance: ALPRAZOLAM
  11. ONDANSETRON [Concomitant]
     Active Substance: ONDANSETRON
  12. PROAIR 90 MCG/ACT [Concomitant]
  13. HYDROCODONE/ACETAMINOPHEN 10/325 MG [Concomitant]
     Active Substance: ACETAMINOPHEN\HYDROCODONE
  14. CLONAZEPAM 1 MG [Concomitant]
     Active Substance: CLONAZEPAM

REACTIONS (2)
  - Paraesthesia [None]
  - Hypoaesthesia [None]

NARRATIVE: CASE EVENT DATE: 20190905
